FAERS Safety Report 12009735 (Version 2)
Quarter: 2016Q1

REPORT INFORMATION
  Report Type: Spontaneous
  Country: NL (occurrence: NL)
  Receive Date: 20160205
  Receipt Date: 20160215
  Transmission Date: 20160526
  Serious: Yes (Disabling, Other)
  Sender: FDA-Public Use
  Company Number: NL-HORIZON-PRE-0024-2016

PATIENT
  Age: 45 Year
  Sex: Female

DRUGS (1)
  1. PREDNISONE. [Suspect]
     Active Substance: PREDNISONE
     Indication: RENAL TRANSPLANT

REACTIONS (2)
  - Urinary tract infection [Recovered/Resolved]
  - Osteonecrosis [Recovered/Resolved]
